FAERS Safety Report 11001241 (Version 2)
Quarter: 2016Q2

REPORT INFORMATION
  Report Type: Spontaneous
  Country: US (occurrence: US)
  Receive Date: 20150408
  Receipt Date: 20160412
  Transmission Date: 20160815
  Serious: No
  Sender: FDA-Public Use
  Company Number: US-SA-2015SA017225

PATIENT
  Age: 82 Year
  Sex: Male
  Weight: 107.95 kg

DRUGS (3)
  1. ALLEGRA [Suspect]
     Active Substance: FEXOFENADINE HYDROCHLORIDE
     Indication: LACRIMATION INCREASED
     Dosage: 9 DAYS AGO
     Route: 048
     Dates: start: 20150501, end: 20150515
  2. ALLEGRA [Suspect]
     Active Substance: FEXOFENADINE HYDROCHLORIDE
     Indication: MULTIPLE ALLERGIES
     Dosage: 9 DAYS AGO
     Route: 048
     Dates: start: 20150501, end: 20150515
  3. ALLEGRA [Suspect]
     Active Substance: FEXOFENADINE HYDROCHLORIDE
     Indication: PRURITUS
     Dosage: 9 DAYS AGO
     Route: 048
     Dates: start: 20150501, end: 20150515

REACTIONS (2)
  - Therapeutic response decreased [Unknown]
  - Blood pressure increased [Recovered/Resolved]

NARRATIVE: CASE EVENT DATE: 20150515
